FAERS Safety Report 6263189-8 (Version None)
Quarter: 2009Q3

REPORT INFORMATION
  Report Type: 
  Country: None (occurrence: None)
  Receive Date: 20090710
  Receipt Date: 20090702
  Transmission Date: 20100115
  Serious: Yes (Hospitalization)
  Sender: FDA-Public Use
  Company Number: US-JNJFOC-20090701704

PATIENT
  Age: 31 Year
  Sex: Female

DRUGS (3)
  1. RISPERDAL CONSTA [Suspect]
     Indication: DEPRESSION
     Route: 030
  2. RISPERDAL [Suspect]
     Indication: DEPRESSION
     Route: 048
  3. CELEXA [Concomitant]
     Indication: DEPRESSION
     Route: 065

REACTIONS (3)
  - HOSPITALISATION [None]
  - INAPPROPRIATE SCHEDULE OF DRUG ADMINISTRATION [None]
  - RASH GENERALISED [None]
